FAERS Safety Report 5823730-3 (Version None)
Quarter: 2008Q3

REPORT INFORMATION
  Report Type: 
  Country: None (occurrence: None)
  Receive Date: 20080725
  Receipt Date: 20080714
  Transmission Date: 20090109
  Serious: Yes (Other)
  Sender: FDA-Public Use
  Company Number: DE-PFIZER INC-2008057897

PATIENT
  Sex: Male
  Weight: 78 kg

DRUGS (2)
  1. LYRICA [Suspect]
     Indication: HEADACHE
     Dosage: DAILY DOSE:50MG
     Route: 048
     Dates: start: 20071126, end: 20080108
  2. DIURETICS [Concomitant]

REACTIONS (1)
  - BLOOD CREATININE INCREASED [None]
